FAERS Safety Report 20992312 (Version 1)
Quarter: 2022Q2

REPORT INFORMATION
  Report Type: Report from Study
  Country: FR (occurrence: None)
  Receive Date: 20220622
  Receipt Date: 20220622
  Transmission Date: 20220721
  Serious: Yes (Other)
  Sender: FDA-Public Use
  Company Number: 2022A174962

PATIENT
  Age: 25818 Day
  Sex: Male

DRUGS (7)
  1. EVUSHELD [Suspect]
     Active Substance: CILGAVIMAB\TIXAGEVIMAB
     Indication: COVID-19 prophylaxis
     Dosage: 150 MG/150 MG ONCE/SINGLE ADMINISTRATION
     Route: 030
     Dates: start: 20220405, end: 20220405
  2. VITAMIN D3 [Concomitant]
     Active Substance: CHOLECALCIFEROL
     Indication: Vitamin D deficiency
     Dosage: 100000.0IU UNKNOWN
     Route: 065
     Dates: start: 20220131
  3. VITAMIN D3 [Concomitant]
     Active Substance: CHOLECALCIFEROL
     Indication: Vitamin D deficiency
     Dosage: 100000.0IU UNKNOWN
     Route: 065
     Dates: start: 20220214
  4. VITAMIN D3 [Concomitant]
     Active Substance: CHOLECALCIFEROL
     Indication: Vitamin D deficiency
     Dosage: 100000.0IU UNKNOWN
     Route: 065
     Dates: start: 20220228
  5. VITAMIN D3 [Concomitant]
     Active Substance: CHOLECALCIFEROL
     Indication: Vitamin D deficiency
     Dosage: 100000.0IU UNKNOWN
     Route: 065
     Dates: start: 20220314
  6. VITAMIN D3 [Concomitant]
     Active Substance: CHOLECALCIFEROL
     Indication: Vitamin D deficiency
     Dosage: 100000.0IU UNKNOWN
     Route: 065
     Dates: start: 20220430
  7. ALLOPURINOL [Concomitant]
     Active Substance: ALLOPURINOL
     Indication: Gout
     Dosage: 250.0MG UNKNOWN
     Route: 065
     Dates: start: 202101

REACTIONS (1)
  - Monoclonal immunoglobulin increased [Not Recovered/Not Resolved]

NARRATIVE: CASE EVENT DATE: 20220428
